FAERS Safety Report 5046980-5 (Version None)
Quarter: 2006Q2

REPORT INFORMATION
  Report Type: 
  Country: None (occurrence: None)
  Receive Date: 20060630
  Receipt Date: 20060620
  Transmission Date: 20061013
  Serious: Yes (Death)
  Sender: FDA-Public Use
  Company Number: 2006080704

PATIENT
  Sex: Male

DRUGS (8)
  1. ATARAX [Suspect]
  2. KETOPROFEN [Suspect]
  3. INIPOMP (PANTOPRAZOLE) [Suspect]
  4. MEGAMYLASE (ALPHA-AMYLASE SWINE PANCREAS) [Suspect]
  5. ACETAMINOPHEN [Suspect]
  6. VALACYCLOVIR [Suspect]
  7. ACETAMINOPHEN [Suspect]
  8. FLUIMICIL (ACETYLCYSTEINE) [Suspect]

REACTIONS (2)
  - DRUG SCREEN POSITIVE [None]
  - GUN SHOT WOUND [None]
